FAERS Safety Report 9409991 (Version 4)
Quarter: 2014Q2

REPORT INFORMATION
  Report Type: Spontaneous
  Country: US (occurrence: US)
  Receive Date: 20130719
  Receipt Date: 20140507
  Transmission Date: 20141212
  Serious: Yes (Other)
  Sender: FDA-Public Use
  Company Number: US-BAYER-2013-086148

PATIENT
  Age: 25 Year
  Sex: Female
  Weight: 68.03 kg

DRUGS (4)
  1. MIRENA [Suspect]
     Indication: CONTRACEPTION
     Dosage: 20 MCG/24HR, CONT
     Route: 015
     Dates: start: 20090821, end: 20110913
  2. MIRENA [Suspect]
     Indication: CONTRACEPTION
     Dosage: 20 MCG/24HR, CONT
     Route: 015
     Dates: start: 20080227, end: 20080811
  3. LOESTRIN FE [Concomitant]
  4. MICRONOR [Concomitant]

REACTIONS (10)
  - Uterine perforation [None]
  - Pregnancy with contraceptive device [None]
  - Drug ineffective [None]
  - Procedural pain [None]
  - Injury [None]
  - Pain [None]
  - Emotional distress [None]
  - Discomfort [None]
  - Gait disturbance [None]
  - Device dislocation [None]
